FAERS Safety Report 18540632 (Version 1)
Quarter: 2020Q4

REPORT INFORMATION
  Report Type: Report from Study
  Country: US (occurrence: US)
  Receive Date: 20201124
  Receipt Date: 20201124
  Transmission Date: 20210114
  Serious: Yes (Hospitalization)
  Sender: FDA-Public Use
  Company Number: US-VERTEX PHARMACEUTICALS-2020-023172

PATIENT
  Age: 31 Year
  Sex: Male

DRUGS (12)
  1. MEPHYTON [Concomitant]
     Active Substance: PHYTONADIONE
  2. VITAMIN D 2000 [Concomitant]
     Active Substance: VITAMIN D NOS
  3. VITAMIN D [ERGOCALCIFEROL] [Concomitant]
     Active Substance: ERGOCALCIFEROL
     Dosage: 50,000 UNITS WEEKLY
  4. VITAMIN E [Concomitant]
     Active Substance: .ALPHA.-TOCOPHEROL
  5. PULMOZYME [Concomitant]
     Active Substance: DORNASE ALFA
  6. CETIRIZINE [Concomitant]
     Active Substance: CETIRIZINE HYDROCHLORIDE
  7. URSODIOL. [Concomitant]
     Active Substance: URSODIOL
  8. TYLENOL [Concomitant]
     Active Substance: ACETAMINOPHEN
  9. TRIKAFTA [Suspect]
     Active Substance: ELEXACAFTOR\IVACAFTOR\TEZACAFTOR
     Indication: CYSTIC FIBROSIS
     Dosage: 100 MG ELEXA/ 50 MG TEZA/ 75 MG IVA AND150 MG IVA, BID
     Route: 048
     Dates: start: 20200226
  10. ZENPEP [Concomitant]
     Active Substance: PANCRELIPASE AMYLASE\PANCRELIPASE LIPASE\PANCRELIPASE PROTEASE
  11. AZITHROMYCIN ANHYDROUS. [Concomitant]
     Active Substance: AZITHROMYCIN ANHYDROUS
  12. IBUPROFEN. [Concomitant]
     Active Substance: IBUPROFEN

REACTIONS (1)
  - Cystic fibrosis respiratory infection suppression [Recovered/Resolved]

NARRATIVE: CASE EVENT DATE: 202010
